FAERS Safety Report 11037064 (Version 1)
Quarter: 2015Q2

REPORT INFORMATION
  Report Type: Spontaneous
  Country: US (occurrence: None)
  Receive Date: 20150415
  Receipt Date: 20150415
  Transmission Date: 20150821
  Serious: Yes (Other)
  Sender: FDA-Public Use
  Company Number: None

PATIENT
  Age: 47 Year
  Sex: Female
  Weight: 83.01 kg

DRUGS (8)
  1. MOTRIN [Concomitant]
     Active Substance: IBUPROFEN
  2. PLAQUENIL [Concomitant]
     Active Substance: HYDROXYCHLOROQUINE SULFATE
  3. ZYERTEK [Concomitant]
  4. TOPIRAMATE. [Suspect]
     Active Substance: TOPIRAMATE
     Indication: SEIZURE
     Dosage: INCREASE TO 100 MG 30 DAYS
     Route: 048
  5. TOPIRAMATE. [Suspect]
     Active Substance: TOPIRAMATE
     Indication: WEIGHT DECREASED
     Dosage: INCREASE TO 100 MG 30 DAYS
     Route: 048
  6. FLONASE [Concomitant]
     Active Substance: FLUTICASONE PROPIONATE
  7. TOPIRAMATE. [Suspect]
     Active Substance: TOPIRAMATE
     Indication: SLEEP DISORDER
     Dosage: INCREASE TO 100 MG 30 DAYS
     Route: 048
  8. WELLBUTRIN [Concomitant]
     Active Substance: BUPROPION HYDROCHLORIDE

REACTIONS (1)
  - Optic disc haemorrhage [None]

NARRATIVE: CASE EVENT DATE: 20150408
